FAERS Safety Report 23753519 (Version 9)
Quarter: 2024Q3

REPORT INFORMATION
  Report Type: Report from Study
  Country: BR (occurrence: BR)
  Receive Date: 20240417
  Receipt Date: 20240920
  Transmission Date: 20241017
  Serious: Yes (Death, Life-Threatening, Hospitalization, Other)
  Sender: NOVARTIS
  Company Number: BR-002147023-NVSC2024BR060629

PATIENT
  Age: 63 Year
  Sex: Female
  Weight: 62 kg

DRUGS (3)
  1. KYMRIAH [Suspect]
     Active Substance: TISAGENLECLEUCEL
     Indication: Diffuse large B-cell lymphoma
     Dosage: UNK, ONCE/SINGLE (3.2 CELL DOSE)
     Route: 042
     Dates: start: 20230216, end: 20230216
  2. CEFEPIME [Concomitant]
     Active Substance: CEFEPIME HYDROCHLORIDE
     Indication: Infection
     Dosage: 6000 MG
     Route: 065
     Dates: start: 20230219
  3. MEROPENEM [Concomitant]
     Active Substance: MEROPENEM
     Indication: Infection
     Dosage: 3000 MG
     Route: 065
     Dates: start: 20230221

REACTIONS (29)
  - Acute myeloid leukaemia [Fatal]
  - Second primary malignancy [Fatal]
  - Neutrophil count decreased [Unknown]
  - Cytokine release syndrome [Recovered/Resolved]
  - Pyrexia [Recovered/Resolved]
  - Hypotension [Recovered/Resolved]
  - Febrile neutropenia [Recovered/Resolved]
  - Platelet count decreased [Unknown]
  - Lymphocyte count decreased [Unknown]
  - Pneumonia [Recovered/Resolved]
  - Vitreous haemorrhage [Recovered/Resolved]
  - Blood alkaline phosphatase increased [Unknown]
  - Blood urea increased [Unknown]
  - Eosinophil count decreased [Unknown]
  - Monocyte count decreased [Unknown]
  - White blood cell count decreased [Unknown]
  - Serum ferritin increased [Unknown]
  - Fibrin D dimer increased [Unknown]
  - Nausea [Recovered/Resolved]
  - Vomiting [Recovered/Resolved]
  - Pain in extremity [Recovered/Resolved]
  - Tremor [Recovered/Resolved]
  - Somnolence [Recovered/Resolved]
  - Constipation [Recovered/Resolved]
  - Fatigue [Recovered/Resolved]
  - Cough [Recovered/Resolved]
  - Oedema peripheral [Not Recovered/Not Resolved]
  - Gingival bleeding [Recovered/Resolved]
  - Hepatic mass [Recovered/Resolved]

NARRATIVE: CASE EVENT DATE: 20230218
